FAERS Safety Report 9805548 (Version 1)
Quarter: 2014Q1

REPORT INFORMATION
  Report Type: Spontaneous
  Country: US (occurrence: None)
  Receive Date: 20140107
  Receipt Date: 20140107
  Transmission Date: 20141002
  Serious: Yes (Other)
  Sender: FDA-Public Use
  Company Number: 2013SA136151

PATIENT
  Sex: Female

DRUGS (1)
  1. ICY HOT [Suspect]
     Indication: BACK PAIN
     Dates: start: 20131227, end: 20131227

REACTIONS (7)
  - Dizziness [None]
  - Chemical injury [None]
  - Application site burn [None]
  - Application site vesicles [None]
  - Burns third degree [None]
  - Burns second degree [None]
  - Skin exfoliation [None]
